FAERS Safety Report 5411542-4 (Version None)
Quarter: 2007Q3

REPORT INFORMATION
  Report Type: 
  Country: None (occurrence: None)
  Receive Date: 20070810
  Receipt Date: 20070731
  Transmission Date: 20080115
  Serious: Yes (Hospitalization, Other)
  Sender: FDA-Public Use
  Company Number: US-PFIZER INC-2007035340

PATIENT
  Sex: Male
  Weight: 66.818 kg

DRUGS (6)
  1. CHANTIX [Suspect]
     Indication: SMOKING CESSATION THERAPY
     Dates: start: 20070424, end: 20070428
  2. ZOCOR [Concomitant]
  3. ANTIEMETICS AND ANTINAUSEANTS [Concomitant]
  4. LAXATIVES [Concomitant]
  5. ANALGESICS [Concomitant]
  6. OXANDROLONE [Concomitant]

REACTIONS (9)
  - COMPRESSION FRACTURE [None]
  - CONVULSION [None]
  - HAEMATOCRIT [None]
  - HAEMOGLOBIN [None]
  - HEART RATE DECREASED [None]
  - LOSS OF CONSCIOUSNESS [None]
  - LYMPHOCYTE COUNT [None]
  - RED BLOOD CELL COUNT [None]
  - WHITE BLOOD CELL COUNT [None]
